FAERS Safety Report 13472659 (Version 2)
Quarter: 2017Q2

REPORT INFORMATION
  Report Type: Spontaneous
  Country: GB (occurrence: GB)
  Receive Date: 20170424
  Receipt Date: 20170502
  Transmission Date: 20170830
  Serious: Yes (Disabling, Other)
  Sender: FDA-Public Use
  Company Number: GB-PFIZER INC-2017168027

PATIENT
  Age: 76 Year
  Sex: Female
  Weight: 62 kg

DRUGS (4)
  1. TIMOLOL. [Suspect]
     Active Substance: TIMOLOL
  2. ARMOUR THYROID [Concomitant]
     Active Substance: THYROID, PORCINE
     Dates: start: 2011
  3. LATANOPROST. [Suspect]
     Active Substance: LATANOPROST
     Indication: OPEN ANGLE GLAUCOMA
     Dosage: 1 GTT, UNK
     Route: 047
     Dates: start: 20130907, end: 20170316
  4. TRUSOPT [Suspect]
     Active Substance: DORZOLAMIDE HYDROCHLORIDE
     Dosage: 1 GTT, UNK
     Route: 047
     Dates: start: 20131007, end: 20170318

REACTIONS (16)
  - Pain in extremity [Recovering/Resolving]
  - Malaise [Recovering/Resolving]
  - Poor quality sleep [Recovering/Resolving]
  - Anosmia [Recovering/Resolving]
  - Headache [Recovering/Resolving]
  - Abdominal discomfort [Recovering/Resolving]
  - Ageusia [Recovering/Resolving]
  - Documented hypersensitivity to administered product [Recovering/Resolving]
  - Hypoaesthesia [Recovering/Resolving]
  - Confusional state [Recovering/Resolving]
  - Gastrointestinal motility disorder [Recovering/Resolving]
  - Dizziness [Recovering/Resolving]
  - Constipation [Recovering/Resolving]
  - Reaction to preservatives [Recovering/Resolving]
  - Vision blurred [Not Recovered/Not Resolved]
  - Gastrooesophageal reflux disease [Recovering/Resolving]
